FAERS Safety Report 17776664 (Version 1)
Quarter: 2020Q2

REPORT INFORMATION
  Report Type: Spontaneous
  Country: CZ (occurrence: CZ)
  Receive Date: 20200513
  Receipt Date: 20200513
  Transmission Date: 20200714
  Serious: Yes (Life-Threatening, Hospitalization, Disabling, Other)
  Sender: FDA-Public Use
  Company Number: NVSC2020CZ128638

PATIENT
  Age: 53 Year
  Sex: Female

DRUGS (1)
  1. COSENTYX [Suspect]
     Active Substance: SECUKINUMAB
     Indication: PSORIATIC ARTHROPATHY
     Dosage: UNK
     Route: 065
     Dates: start: 201904, end: 201907

REACTIONS (9)
  - Cerebrovascular accident [Not Recovered/Not Resolved]
  - Central nervous system abscess [Unknown]
  - Abscess neck [Unknown]
  - Otitis media [Unknown]
  - Intracranial aneurysm [Unknown]
  - Sinusitis [Unknown]
  - Vomiting [Recovered/Resolved]
  - Headache [Not Recovered/Not Resolved]
  - Tympanic membrane perforation [Unknown]

NARRATIVE: CASE EVENT DATE: 201907
